FAERS Safety Report 9404696 (Version 1)
Quarter: 2013Q3

REPORT INFORMATION
  Report Type: Report from Study
  Country: US (occurrence: US)
  Receive Date: 20130717
  Receipt Date: 20130717
  Transmission Date: 20140515
  Serious: No
  Sender: FDA-Public Use
  Company Number: PHEH2013US014904

PATIENT
  Age: 58 Year
  Sex: Female

DRUGS (7)
  1. TASIGNA [Suspect]
     Indication: NECROSIS
     Dosage: 400 MG, BID
     Route: 048
     Dates: start: 20130425, end: 20130516
  2. TASIGNA [Suspect]
     Indication: OFF LABEL USE
  3. CHLORTHALIDONE [Concomitant]
  4. SYNTHROID [Concomitant]
  5. CYTOMEL [Concomitant]
  6. LEXAPRO [Concomitant]
  7. LOSARTAN [Concomitant]

REACTIONS (1)
  - Rash generalised [Recovered/Resolved]
